FAERS Safety Report 13020114 (Version 1)
Quarter: 2016Q4

REPORT INFORMATION
  Report Type: Spontaneous
  Country: US (occurrence: US)
  Receive Date: 20161212
  Receipt Date: 20161212
  Transmission Date: 20170207
  Serious: No
  Sender: FDA-Public Use
  Company Number: US-NOVOPROD-471487

PATIENT
  Age: 68 Year
  Sex: Female

DRUGS (1)
  1. NOVOLIN R [Suspect]
     Active Substance: INSULIN HUMAN
     Indication: TYPE 2 DIABETES MELLITUS
     Route: 058
     Dates: start: 20151111

REACTIONS (6)
  - Feeling jittery [Not Recovered/Not Resolved]
  - Eye pain [Not Recovered/Not Resolved]
  - Hypoaesthesia [Not Recovered/Not Resolved]
  - Neck pain [Not Recovered/Not Resolved]
  - Chest pain [Not Recovered/Not Resolved]
  - Hypoaesthesia oral [Not Recovered/Not Resolved]
